FAERS Safety Report 21989317 (Version 1)
Quarter: 2023Q1

REPORT INFORMATION
  Report Type: Spontaneous
  Country: US (occurrence: None)
  Receive Date: 20230210
  Receipt Date: 20230210
  Transmission Date: 20230418
  Serious: Yes (Death)
  Sender: FDA-Public Use
  Company Number: None

PATIENT
  Age: 68 Year
  Sex: Male

DRUGS (14)
  1. PIRFENIDONE [Suspect]
     Active Substance: PIRFENIDONE
     Indication: Idiopathic pulmonary fibrosis
     Dosage: FREQUENCY : TWICE A DAY;?
     Route: 048
     Dates: start: 20190520, end: 20221225
  2. PANTOPRAZOLE [Concomitant]
  3. CALCIPOTRIENE SCLO SOLN [Concomitant]
  4. FLUOXETINE [Concomitant]
  5. JARDIANCE [Concomitant]
  6. METOPROLOL [Concomitant]
     Active Substance: METOPROLOL
  7. SPIRONOLACTONE [Concomitant]
  8. GABAPENTIN [Concomitant]
  9. ENTRESTO [Concomitant]
  10. ATORVASTATIN [Concomitant]
  11. CALCITRIOL [Concomitant]
     Active Substance: CALCITRIOL
  12. LEVALBUTEROL HFA [Concomitant]
  13. VITAMINS [Concomitant]
     Active Substance: VITAMINS
  14. VIT D3 [Concomitant]

REACTIONS (4)
  - Acute respiratory failure [None]
  - Cardiogenic shock [None]
  - Right ventricular failure [None]
  - Multiple organ dysfunction syndrome [None]

NARRATIVE: CASE EVENT DATE: 20221212
